FAERS Safety Report 4810874-8 (Version None)
Quarter: 2005Q4

REPORT INFORMATION
  Report Type: 
  Country: None (occurrence: None)
  Receive Date: 20051025
  Receipt Date: 20051025
  Transmission Date: 20060501
  Serious: Yes (Hospitalization)
  Sender: FDA-Public Use
  Company Number: None

PATIENT
  Age: 68 Year
  Sex: Female

DRUGS (10)
  1. ARICEPT [Suspect]
     Indication: DEMENTIA ALZHEIMER'S TYPE
     Dosage: 10MG DAILY PO
     Route: 048
  2. BEXTRA [Concomitant]
  3. VIOXX [Concomitant]
  4. LIPITOR [Concomitant]
  5. ASPIRIN [Concomitant]
  6. CLARITIN-D [Concomitant]
  7. M.V.I. [Concomitant]
  8. LEVOTHYROXINE [Concomitant]
  9. HYDROCHLOROTHIAZIDE [Concomitant]
  10. CALCIUM GLUCONATE [Concomitant]

REACTIONS (5)
  - ARRHYTHMIA [None]
  - BLOOD PRESSURE DECREASED [None]
  - SICK SINUS SYNDROME [None]
  - SINUS BRADYCARDIA [None]
  - SYNCOPE [None]
